FAERS Safety Report 6855513-X (Version None)
Quarter: 2010Q3

REPORT INFORMATION
  Report Type: 
  Country: None (occurrence: None)
  Receive Date: 20100719
  Receipt Date: 20100715
  Transmission Date: 20110219
  Serious: Yes (Other)
  Sender: FDA-Public Use
  Company Number: US-ASTRAZENECA-2007UW09595

PATIENT
  Age: 42 Year
  Sex: Female

DRUGS (10)
  1. SEROQUEL [Suspect]
     Indication: DEPRESSION
     Route: 048
     Dates: start: 20031203
  2. SEROQUEL [Suspect]
     Route: 048
     Dates: start: 20031212, end: 20050101
  3. SEROQUEL [Suspect]
     Route: 048
     Dates: end: 20060601
  4. TOPAMAX [Concomitant]
     Indication: INCREASED APPETITE
     Dates: start: 20040101, end: 20050101
  5. TOPAMAX [Concomitant]
     Indication: WEIGHT INCREASED
     Dates: start: 20040101, end: 20050101
  6. TOPAMAX [Concomitant]
     Indication: AFFECTIVE DISORDER
     Dates: start: 20040101, end: 20050101
  7. TOPAMAX [Concomitant]
     Dates: start: 20040402
  8. TOPAMAX [Concomitant]
     Dates: start: 20040402
  9. TOPAMAX [Concomitant]
     Dates: start: 20040402
  10. PAXIL CR [Concomitant]
     Indication: DEPRESSION
     Dates: start: 20040402

REACTIONS (5)
  - CONVULSION [None]
  - INSOMNIA [None]
  - LIMB INJURY [None]
  - NEUROPATHY PERIPHERAL [None]
  - TYPE 2 DIABETES MELLITUS [None]
